FAERS Safety Report 7717509-5 (Version None)
Quarter: 2011Q3

REPORT INFORMATION
  Report Type: 
  Country: None (occurrence: None)
  Receive Date: 20110830
  Receipt Date: 20110818
  Transmission Date: 20111222
  Serious: Yes (Other)
  Sender: FDA-Public Use
  Company Number: DE-ELI_LILLY_AND_COMPANY-DE201101002940

PATIENT
  Age: 81 Year
  Sex: Female

DRUGS (6)
  1. FORTEO [Suspect]
     Indication: OSTEOPOROSIS
     Dosage: UNK
     Route: 058
     Dates: start: 20100915
  2. CALCIUM CARBONATE [Concomitant]
  3. MORPHINE [Concomitant]
     Dosage: 25 MG, UNK
  4. ANALGESICS [Concomitant]
     Indication: ANALGESIC THERAPY
  5. FORTEO [Suspect]
     Dosage: UNK UNK, OTHER THREE TIMES PER WEEK
     Route: 058
  6. TILIDINE [Concomitant]

REACTIONS (4)
  - SKIN DEPIGMENTATION [None]
  - RASH [None]
  - SKIN CANCER [None]
  - INAPPROPRIATE SCHEDULE OF DRUG ADMINISTRATION [None]
